FAERS Safety Report 8756288 (Version 4)
Quarter: 2013Q2

REPORT INFORMATION
  Report Type: Spontaneous
  Country: IT (occurrence: IT)
  Receive Date: 20120828
  Receipt Date: 20130613
  Transmission Date: 20140414
  Serious: Yes (Hospitalization)
  Sender: FDA-Public Use
  Company Number: PHHY2012IT072299

PATIENT
  Age: 48 Year
  Sex: Female

DRUGS (7)
  1. CLOZAPINE [Suspect]
     Indication: BIPOLAR I DISORDER
     Dosage: 100 MG, PER DAY
  2. CLOZAPINE [Suspect]
     Dosage: 25 MG, PER DAY
  3. CLOZAPINE [Suspect]
     Dosage: 25 MG, UNK
  4. OLANZAPINE [Suspect]
     Indication: BIPOLAR I DISORDER
     Dosage: 10 MG, PER DAY
  5. HALOPERIDOL [Suspect]
     Indication: BIPOLAR I DISORDER
     Dosage: 2 MG, UNK
     Route: 030
  6. HALOPERIDOL [Suspect]
     Dosage: 6 MG, PER DAY
     Route: 030
  7. CHLORPROMAZINE [Suspect]
     Indication: BIPOLAR I DISORDER
     Dosage: 50 MG, UNK
     Route: 030

REACTIONS (25)
  - Catatonia [Recovered/Resolved]
  - Anxiety [Recovered/Resolved]
  - Restlessness [Recovered/Resolved]
  - Psychomotor retardation [Recovered/Resolved]
  - Bladder dysfunction [Recovered/Resolved]
  - Delirium [Recovered/Resolved]
  - Autonomic nervous system imbalance [Recovered/Resolved]
  - Renal impairment [Recovered/Resolved]
  - Confusional state [Recovered/Resolved]
  - Waxy flexibility [Recovered/Resolved]
  - Psychomotor hyperactivity [Recovered/Resolved]
  - Mutism [Recovered/Resolved]
  - Negativism [Recovered/Resolved]
  - Neuroleptic malignant syndrome [Recovered/Resolved]
  - Rhabdomyolysis [Recovered/Resolved]
  - Stupor [Recovered/Resolved]
  - Delusion [Recovered/Resolved]
  - Muscle rigidity [Recovered/Resolved]
  - Tachycardia [Recovered/Resolved]
  - Hyperhidrosis [Recovered/Resolved]
  - Urinary retention [Recovered/Resolved]
  - Pyrexia [Recovered/Resolved]
  - Leukocytosis [Recovered/Resolved]
  - Insomnia [Recovered/Resolved]
  - Agitation [Recovered/Resolved]
